FAERS Safety Report 13286779 (Version 2)
Quarter: 2017Q1

REPORT INFORMATION
  Report Type: Spontaneous
  Country: DZ (occurrence: DZ)
  Receive Date: 20170302
  Receipt Date: 20170328
  Transmission Date: 20170428
  Serious: Yes (Other)
  Sender: FDA-Public Use
  Company Number: DZ-PFIZER INC-2017087426

PATIENT
  Age: 43 Year
  Sex: Female

DRUGS (1)
  1. SUTENT [Suspect]
     Active Substance: SUNITINIB MALATE
     Indication: METASTATIC RENAL CELL CARCINOMA
     Dosage: 50 MG/DAY, CYCLIC, 4 WEEKS ON, 2 WEEKS OFF FOR 3 CYCLES
     Route: 048
     Dates: start: 20140623

REACTIONS (5)
  - Diarrhoea [Unknown]
  - Hypertension [Unknown]
  - Vomiting [Unknown]
  - Asthenia [Unknown]
  - Hypothyroidism [Unknown]
